FAERS Safety Report 18745985 (Version 9)
Quarter: 2021Q3

REPORT INFORMATION
  Report Type: Other
  Country: SI (occurrence: SI)
  Receive Date: 20210115
  Receipt Date: 20210805
  Transmission Date: 20211014
  Serious: Yes (Other)
  Sender: FDA-Public Use
  Company Number: SI-ROCHE-2711058

PATIENT
  Age: 74 Year
  Sex: Male
  Weight: 93 kg

DRUGS (6)
  1. CONTROLOC [Concomitant]
     Active Substance: PANTOPRAZOLE SODIUM
     Route: 048
     Dates: start: 20201202
  2. ENTRECTINIB [Suspect]
     Active Substance: ENTRECTINIB
     Route: 048
  3. XGEVA [Concomitant]
     Active Substance: DENOSUMAB
     Indication: METASTASES TO BONE
     Route: 058
     Dates: start: 20201216
  4. CALCIUM CARBONATE. [Concomitant]
     Active Substance: CALCIUM CARBONATE
     Indication: MINERAL SUPPLEMENTATION
     Dosage: CALCIUM REPLACEMENT AT XGEVA
     Route: 048
     Dates: start: 20201216
  5. PLIVIT D3 [Concomitant]
     Active Substance: CHOLECALCIFEROL
     Dosage: CALCIUM REPLACEMENT AT XGEVA
     Route: 048
     Dates: start: 20201216
  6. ENTRECTINIB [Suspect]
     Active Substance: ENTRECTINIB
     Indication: NON-SMALL CELL LUNG CANCER
     Route: 048
     Dates: start: 20201021

REACTIONS (9)
  - Arthralgia [Recovered/Resolved]
  - Oedema [Recovered/Resolved]
  - Oesophageal pain [Recovered/Resolved]
  - Weight increased [Not Recovered/Not Resolved]
  - Sinus bradycardia [Not Recovered/Not Resolved]
  - Blood uric acid abnormal [Recovered/Resolved]
  - Constipation [Recovered/Resolved]
  - Dry mouth [Not Recovered/Not Resolved]
  - Gastrooesophageal reflux disease [Recovered/Resolved]

NARRATIVE: CASE EVENT DATE: 20201024
